FAERS Safety Report 24341094 (Version 1)
Quarter: 2024Q3

REPORT INFORMATION
  Report Type: Spontaneous
  Country: CN (occurrence: CN)
  Receive Date: 20240919
  Receipt Date: 20240919
  Transmission Date: 20241017
  Serious: Yes (Other)
  Sender: AMGEN
  Company Number: CN-AMGEN-CHNSP2024183410

PATIENT

DRUGS (5)
  1. BLINATUMOMAB [Suspect]
     Active Substance: BLINATUMOMAB
     Indication: B precursor type acute leukaemia
     Dosage: 9 MICROGRAM, QD (DAYS 8-14)
     Route: 065
  2. BLINATUMOMAB [Suspect]
     Active Substance: BLINATUMOMAB
     Dosage: 28 MICROGRAM, QD (DAYS 15-21)
     Route: 065
  3. IDARUBICIN [Concomitant]
     Active Substance: IDARUBICIN
     Indication: B precursor type acute leukaemia
     Dosage: 8 MILLIGRAM/SQ. METER, QD DAY 1
     Route: 042
  4. VINDESINE [Concomitant]
     Active Substance: VINDESINE
     Indication: B precursor type acute leukaemia
     Dosage: 3 MILLIGRAM/SQ. METER, QD
     Route: 042
  5. DEXAMETHASONE [Concomitant]
     Active Substance: DEXAMETHASONE
     Indication: B precursor type acute leukaemia
     Dosage: 9 MILLIGRAM/SQ. METER, QD (DAY 1-7)
     Route: 042

REACTIONS (2)
  - Precursor B-lymphoblastic lymphoma recurrent [Unknown]
  - Minimal residual disease [Unknown]
